FAERS Safety Report 17068951 (Version 1)
Quarter: 2019Q4

REPORT INFORMATION
  Report Type: Spontaneous
  Country: US (occurrence: US)
  Receive Date: 20191024
  Receipt Date: 20191024
  Transmission Date: 20200122
  Serious: No
  Sender: FDA-Public Use
  Company Number: None

PATIENT
  Age: 80 Year
  Sex: Male
  Weight: 88.45 kg

DRUGS (1)
  1. BALVERSA [Suspect]
     Active Substance: ERDAFITINIB
     Indication: BLADDER CANCER
     Route: 048
     Dates: start: 20190720, end: 20190920

REACTIONS (1)
  - Chorioretinopathy [None]

NARRATIVE: CASE EVENT DATE: 20191001
